FAERS Safety Report 12557656 (Version 1)
Quarter: 2016Q3

REPORT INFORMATION
  Report Type: Spontaneous
  Country: US (occurrence: US)
  Receive Date: 20160714
  Receipt Date: 20160714
  Transmission Date: 20161109
  Serious: No
  Sender: FDA-Public Use
  Company Number: US-TARO-2016TAR00034

PATIENT
  Age: 37 Year
  Sex: Female
  Weight: 54.42 kg

DRUGS (2)
  1. HUMALOG [Concomitant]
     Active Substance: INSULIN LISPRO
     Dosage: VIA INSULIN PUMP
     Route: 051
  2. GRANISETRON 1 MG TABLETS [Suspect]
     Active Substance: GRANISETRON
     Indication: VOMITING
     Dosage: 1 MG, 1X/DAY
     Route: 048
     Dates: start: 20160109

REACTIONS (1)
  - Drug effect incomplete [Not Recovered/Not Resolved]

NARRATIVE: CASE EVENT DATE: 20160109
